FAERS Safety Report 21550843 (Version 1)
Quarter: 2022Q4

REPORT INFORMATION
  Report Type: Report from Study
  Country: US (occurrence: US)
  Receive Date: 20221103
  Receipt Date: 20221103
  Transmission Date: 20230112
  Serious: No
  Sender: FDA-Public Use
  Company Number: US-ABBVIE-4157372

PATIENT
  Age: 69 Year
  Sex: Female

DRUGS (3)
  1. SKYRIZI [Suspect]
     Active Substance: RISANKIZUMAB-RZAA
     Indication: Psoriasis
     Dosage: WEEK 0, FORM STRENGTH 150 MILLIGRAM
     Route: 058
     Dates: start: 202109, end: 2021
  2. SKYRIZI [Suspect]
     Active Substance: RISANKIZUMAB-RZAA
     Dosage: WEEK 4, FORM STRENGTH 150 MILLIGRAM, START AND STOP DATE 2021
     Route: 058
  3. SKYRIZI [Suspect]
     Active Substance: RISANKIZUMAB-RZAA
     Dosage: FORM STRENGTH 150 MILLIGRAM
     Route: 058

REACTIONS (8)
  - Weight decreased [Unknown]
  - Malaise [Unknown]
  - Sinusitis [Unknown]
  - Haemoglobin increased [Recovered/Resolved]
  - Chills [Unknown]
  - Feeling cold [Unknown]
  - Gastrointestinal infection [Unknown]
  - Inappropriate schedule of product administration [Unknown]

NARRATIVE: CASE EVENT DATE: 20220901
